FAERS Safety Report 10049541 (Version 1)
Quarter: 2014Q2

REPORT INFORMATION
  Report Type: Other
  Country: GB (occurrence: GB)
  Receive Date: 20140401
  Receipt Date: 20140401
  Transmission Date: 20141212
  Serious: Yes (Hospitalization, Other)
  Sender: FDA-Public Use
  Company Number: GB-SUN PHARMACEUTICAL INDUSTRIES LTD-2014SUN00685

PATIENT
  Age: 65 Year
  Sex: Male

DRUGS (14)
  1. GEMCITABINE SUN 200 MG POWDER FOR SOLUTION FOR INFUSION [Suspect]
     Indication: BLADDER CANCER
     Dosage: UNK
     Route: 042
     Dates: start: 20111222, end: 20120417
  2. CISPLATIN [Suspect]
     Indication: BLADDER CANCER
     Route: 042
     Dates: start: 201112, end: 20120417
  3. DEXAMETHASONE [Concomitant]
     Indication: PROPHYLAXIS
     Dates: start: 20111223, end: 20111225
  4. DEXAMETHASONE [Concomitant]
     Dates: start: 20120201, end: 20120203
  5. DEXAMETHASONE [Concomitant]
     Dates: start: 20120111, end: 20120113
  6. MACROGOL [Concomitant]
     Indication: CONSTIPATION
     Route: 048
     Dates: start: 20120117
  7. METOCLOPRAMIDE [Concomitant]
     Indication: NAUSEA
     Route: 048
     Dates: start: 20111208
  8. ONDANSETRON [Concomitant]
     Indication: PROPHYLAXIS
     Route: 048
     Dates: start: 20120110, end: 20120113
  9. ONDANSETRON [Concomitant]
     Route: 048
     Dates: start: 20111222, end: 20111223
  10. ONDANSETRON [Concomitant]
     Route: 048
     Dates: start: 20120131, end: 20120201
  11. ORAMORPH [Concomitant]
     Indication: BACK PAIN
     Route: 048
     Dates: start: 20111219, end: 20120318
  12. PREDNISOLONE [Concomitant]
     Indication: CHRONIC OBSTRUCTIVE PULMONARY DISEASE
     Route: 048
     Dates: start: 20120127, end: 20120128
  13. UNIPHYLLIN [Concomitant]
     Indication: CHRONIC OBSTRUCTIVE PULMONARY DISEASE
     Dates: start: 20120423
  14. UNIPHYLLIN [Concomitant]
     Dates: start: 2003

REACTIONS (7)
  - Chronic obstructive pulmonary disease [Not Recovered/Not Resolved]
  - Lethargy [Not Recovered/Not Resolved]
  - Dysgeusia [Not Recovered/Not Resolved]
  - Pyrexia [Recovered/Resolved]
  - Nausea [Not Recovered/Not Resolved]
  - Back pain [Not Recovered/Not Resolved]
  - Constipation [Not Recovered/Not Resolved]
